FAERS Safety Report 4705703-7 (Version None)
Quarter: 2005Q2

REPORT INFORMATION
  Report Type: 
  Country: None (occurrence: None)
  Receive Date: 20050629
  Receipt Date: 20050612
  Transmission Date: 20051028
  Serious: Yes (Other)
  Sender: FDA-Public Use
  Company Number: 2005092544

PATIENT
  Age: 48 Year
  Sex: Male

DRUGS (2)
  1. VFEND [Suspect]
     Indication: PNEUMONIA
     Dosage: 360 MG (DAILY), INTRAVENOUS
     Route: 042
  2. ANTIBIOTICS (ANTIBIOTICS) [Concomitant]

REACTIONS (4)
  - CONFUSIONAL STATE [None]
  - RESTLESSNESS [None]
  - TREMOR [None]
  - VISUAL DISTURBANCE [None]
